FAERS Safety Report 10276539 (Version 2)
Quarter: 2014Q3

REPORT INFORMATION
  Report Type: Spontaneous
  Country: US (occurrence: US)
  Receive Date: 20140703
  Receipt Date: 20140815
  Transmission Date: 20150326
  Serious: Yes (Hospitalization, Other)
  Sender: FDA-Public Use
  Company Number: US-BAYER-2014-099285

PATIENT
  Age: 23 Year
  Sex: Female

DRUGS (1)
  1. MIRENA [Suspect]
     Active Substance: LEVONORGESTREL
     Dosage: 20 MCG/24HR, CONT
     Route: 015
     Dates: start: 201201, end: 201205

REACTIONS (27)
  - Pain [None]
  - Hypertension [None]
  - Migraine [None]
  - Genital haemorrhage [None]
  - Fear of disease [None]
  - Device defective [None]
  - Dizziness [None]
  - Menorrhagia [None]
  - Ovarian cyst [None]
  - Emotional distress [None]
  - Grief reaction [None]
  - Amenorrhoea [None]
  - Uterine perforation [None]
  - Uterine scar [None]
  - Depression [None]
  - Nausea [None]
  - Urinary tract infection [None]
  - Infertility female [None]
  - Injury [None]
  - Anxiety [None]
  - Anhedonia [None]
  - Anaemia [None]
  - Headache [None]
  - Pelvic inflammatory disease [None]
  - Fear [None]
  - Depressed mood [None]
  - Dyspareunia [None]

NARRATIVE: CASE EVENT DATE: 2012
